FAERS Safety Report 7511907-0 (Version None)
Quarter: 2011Q2

REPORT INFORMATION
  Report Type: 
  Country: None (occurrence: None)
  Receive Date: 20110531
  Receipt Date: 20110526
  Transmission Date: 20111010
  Serious: Yes (Other)
  Sender: FDA-Public Use
  Company Number: JP-PFIZER INC-2011109438

PATIENT
  Age: 73 Year
  Sex: Female

DRUGS (4)
  1. VARENICLINE TARTRATE [Suspect]
     Indication: SMOKING CESSATION THERAPY
     Dosage: 1 MG/DAY
     Route: 048
     Dates: start: 20110506, end: 20110525
  2. EXFORGE [Concomitant]
     Dosage: UNK
     Route: 048
  3. CRESTOR [Concomitant]
     Dosage: UNK
     Route: 048
  4. MUCOSTA [Concomitant]
     Dosage: UNK
     Route: 048

REACTIONS (3)
  - DEPRESSION [None]
  - LISTLESS [None]
  - NAUSEA [None]
